FAERS Safety Report 22250555 (Version 1)
Quarter: 2023Q2

REPORT INFORMATION
  Report Type: Report from Study
  Country: AU (occurrence: AU)
  Receive Date: 20230425
  Receipt Date: 20230425
  Transmission Date: 20230721
  Serious: Yes (Hospitalization)
  Sender: FDA-Public Use
  Company Number: AU-PFIZER INC-PV202300028575

PATIENT
  Age: 40 Year
  Sex: Female

DRUGS (5)
  1. LEUCOVORIN [Suspect]
     Active Substance: LEUCOVORIN
     Indication: Colorectal cancer metastatic
     Dosage: 700 MG, EVERY 2 WEEKS
     Route: 042
     Dates: start: 20220818, end: 20230125
  2. ADRUCIL [Suspect]
     Active Substance: FLUOROURACIL
     Indication: Colorectal cancer metastatic
     Dosage: 5600 MG, EVERY 2 WEEKS
     Route: 042
     Dates: start: 20220818, end: 20230127
  3. IRINOTECAN HYDROCHLORIDE [Suspect]
     Active Substance: IRINOTECAN HYDROCHLORIDE
     Indication: Colorectal cancer metastatic
     Dosage: 290 MG, EVERY 2 WEEKS
     Route: 042
     Dates: start: 20220818, end: 20221103
  4. OXALIPLATIN [Suspect]
     Active Substance: OXALIPLATIN
     Indication: Colorectal cancer metastatic
     Dosage: 150 MG, EVERY 2 WEEKS
     Route: 042
     Dates: start: 20220818, end: 20221103
  5. AVASTIN [Suspect]
     Active Substance: BEVACIZUMAB
     Indication: Colorectal cancer metastatic
     Dosage: 325 MG, EVERY 2 WEEKS
     Route: 042
     Dates: start: 20220818, end: 20230125

REACTIONS (1)
  - Catheter site infection [Recovered/Resolved]

NARRATIVE: CASE EVENT DATE: 20230203
